FAERS Safety Report 16255558 (Version 1)
Quarter: 2019Q2

REPORT INFORMATION
  Report Type: Spontaneous
  Country: US (occurrence: US)
  Receive Date: 20190430
  Receipt Date: 20190430
  Transmission Date: 20190711
  Serious: Yes (Other)
  Sender: FDA-Public Use
  Company Number: US-009507513-1904USA010356

PATIENT
  Age: 19 Year
  Sex: Female
  Weight: 59.41 kg

DRUGS (1)
  1. NEXPLANON [Suspect]
     Active Substance: ETONOGESTREL
     Indication: CONTRACEPTION
     Dosage: ONE IMPLANT (LEFT) FOR 3 YEARS
     Route: 059
     Dates: start: 20180522

REACTIONS (3)
  - Early satiety [Not Recovered/Not Resolved]
  - Menorrhagia [Not Recovered/Not Resolved]
  - Chlamydial infection [Unknown]

NARRATIVE: CASE EVENT DATE: 20180522
